FAERS Safety Report 8618616-5 (Version None)
Quarter: 2012Q3

REPORT INFORMATION
  Report Type: 
  Country: None (occurrence: None)
  Receive Date: 20120814
  Receipt Date: 20120814
  Transmission Date: 20120928
  Serious: Yes (Other)
  Sender: FDA-Public Use
  Company Number: None

PATIENT
  Sex: Female
  Weight: 113.3993 kg

DRUGS (1)
  1. STRATTERA [Suspect]
     Indication: COGNITIVE DISORDER
     Dates: start: 20120101, end: 20120724

REACTIONS (2)
  - VISION BLURRED [None]
  - BLOOD PRESSURE INCREASED [None]
